FAERS Safety Report 6130758-5 (Version None)
Quarter: 2009Q1

REPORT INFORMATION
  Report Type: 
  Country: None (occurrence: None)
  Receive Date: 20090325
  Receipt Date: 20090318
  Transmission Date: 20090719
  Serious: Yes (Other)
  Sender: FDA-Public Use
  Company Number: US-JNJFOC-20090304927

PATIENT
  Sex: Male
  Weight: 70.31 kg

DRUGS (8)
  1. FENTANYL TRANSDERMAL SYSTEM [Suspect]
     Indication: PAIN IN EXTREMITY
     Route: 062
  2. FENTANYL TRANSDERMAL SYSTEM [Suspect]
     Route: 062
  3. FENTANYL TRANSDERMAL SYSTEM [Concomitant]
     Indication: DRUG USE FOR UNKNOWN INDICATION
     Route: 062
  4. GABAPENTIN [Concomitant]
     Indication: PAIN IN EXTREMITY
     Route: 048
  5. GABAPENTIN [Concomitant]
     Route: 048
  6. CLONAZEPAM [Concomitant]
     Indication: DRUG USE FOR UNKNOWN INDICATION
     Route: 048
  7. CLONAZEPAM [Concomitant]
     Indication: WITHDRAWAL SYNDROME
     Route: 048
  8. LIPITOR [Concomitant]
     Indication: CARDIAC DISORDER
     Route: 048

REACTIONS (5)
  - CHOKING [None]
  - DRUG INEFFECTIVE [None]
  - DYSPNOEA [None]
  - TREATMENT NONCOMPLIANCE [None]
  - WITHDRAWAL SYNDROME [None]
